FAERS Safety Report 7221391-2 (Version None)
Quarter: 2011Q1

REPORT INFORMATION
  Report Type: 
  Country: None (occurrence: None)
  Receive Date: 20110112
  Receipt Date: 20110103
  Transmission Date: 20110831
  Serious: Yes (Hospitalization)
  Sender: FDA-Public Use
  Company Number: BR-MEDIMMUNE-MEDI-0012158

PATIENT
  Sex: Male
  Weight: 6.6 kg

DRUGS (3)
  1. FERRIC HYDROXIDE POLYMALTOSE COMPLEX [Concomitant]
     Indication: VITAMIN SUPPLEMENTATION
     Route: 048
     Dates: start: 20100603, end: 20101227
  2. SYNAGIS [Suspect]
     Route: 030
     Dates: start: 20100908, end: 20101210
  3. BROMOPRIDE [Concomitant]
     Route: 048
     Dates: start: 20100901, end: 20101227

REACTIONS (3)
  - DYSPNOEA [None]
  - NASOPHARYNGITIS [None]
  - BRONCHOSPASM [None]
